FAERS Safety Report 9498394 (Version 2)
Quarter: 2013Q4

REPORT INFORMATION
  Report Type: Spontaneous
  Country: JP (occurrence: JP)
  Receive Date: 20130904
  Receipt Date: 20131003
  Transmission Date: 20140711
  Serious: Yes (Other)
  Sender: FDA-Public Use
  Company Number: JP-OTSUKA-JP-2013-13422

PATIENT
  Age: 71 Year
  Sex: Male

DRUGS (2)
  1. PLETAAL [Suspect]
     Dosage: 200 MG MILLIGRAM(S), DAILY DOSE
     Route: 048
  2. ASPIRIN [Concomitant]
     Dosage: UNK
     Route: 065

REACTIONS (3)
  - Hemiplegia [Unknown]
  - Cerebral infarction [Unknown]
  - Subarachnoid haemorrhage [Unknown]
